FAERS Safety Report 9194442 (Version 1)
Quarter: 2013Q1

REPORT INFORMATION
  Report Type: Spontaneous
  Country: US (occurrence: US)
  Receive Date: 20130327
  Receipt Date: 20130327
  Transmission Date: 20140127
  Serious: No
  Sender: FDA-Public Use
  Company Number: US-ALLERGAN-1204559US

PATIENT
  Age: 68 Year
  Sex: Female

DRUGS (4)
  1. LATISSE 0.03% [Suspect]
     Indication: GROWTH OF EYELASHES
     Dosage: 2 GTT, QHS
     Route: 061
     Dates: start: 201201
  2. EYE LASH DYE [Concomitant]
  3. THRYOID MEDICATION [Concomitant]
     Indication: THYROID DISORDER
  4. CHOLESTEROL MEDICATION [Concomitant]
     Indication: BLOOD CHOLESTEROL INCREASED

REACTIONS (3)
  - Wrong technique in drug usage process [Unknown]
  - Erythema of eyelid [Not Recovered/Not Resolved]
  - Drug ineffective [Unknown]
